FAERS Safety Report 10055560 (Version 1)
Quarter: 2014Q2

REPORT INFORMATION
  Report Type: Spontaneous
  Country: US (occurrence: None)
  Receive Date: 20140402
  Receipt Date: 20140402
  Transmission Date: 20141212
  Serious: Yes (Disabling)
  Sender: FDA-Public Use
  Company Number: None

PATIENT
  Age: 64 Year
  Sex: Male
  Weight: 102.06 kg

DRUGS (1)
  1. ALLERCLEAR [Suspect]
     Indication: HYPERSENSITIVITY
     Route: 048
     Dates: start: 20130701, end: 20131101

REACTIONS (2)
  - Product contamination physical [None]
  - Pain [None]
